FAERS Safety Report 10047322 (Version 3)
Quarter: 2014Q2

REPORT INFORMATION
  Report Type: Spontaneous
  Country: JP (occurrence: JP)
  Receive Date: 20140331
  Receipt Date: 20140424
  Transmission Date: 20141212
  Serious: Yes (Other)
  Sender: FDA-Public Use
  Company Number: JP-JNJFOC-20140317802

PATIENT
  Age: 1 Month
  Sex: Female

DRUGS (4)
  1. TRAMCET [Suspect]
     Indication: PRODUCT USED FOR UNKNOWN INDICATION
     Route: 048
     Dates: start: 201312, end: 201403
  2. BOTOX [Concomitant]
     Indication: MUSCLE SPASMS
     Route: 065
     Dates: start: 201308
  3. BOTOX [Concomitant]
     Indication: MUSCLE SPASMS
     Route: 065
     Dates: start: 201403
  4. BOTOX [Concomitant]
     Indication: MUSCLE SPASMS
     Route: 065
     Dates: start: 201311

REACTIONS (2)
  - Dyskinesia [Unknown]
  - Speech disorder [Unknown]
